FAERS Safety Report 14355403 (Version 1)
Quarter: 2018Q1

REPORT INFORMATION
  Report Type: Spontaneous
  Country: GB (occurrence: GB)
  Receive Date: 20180105
  Receipt Date: 20180105
  Transmission Date: 20180509
  Serious: Yes (Other)
  Sender: FDA-Public Use
  Company Number: GB-ASTRAZENECA-2018SE01294

PATIENT
  Age: 99 Year

DRUGS (1)
  1. BICALUTAMIDE. [Suspect]
     Active Substance: BICALUTAMIDE
     Dosage: 150.0MG UNKNOWN
     Route: 048

REACTIONS (5)
  - Dyspnoea [Unknown]
  - Accidental overdose [Unknown]
  - Chest pain [Unknown]
  - Drug dispensing error [Unknown]
  - Cough [Unknown]
